FAERS Safety Report 4966368-2 (Version None)
Quarter: 2006Q2

REPORT INFORMATION
  Report Type: 
  Country: None (occurrence: None)
  Receive Date: 20060407
  Receipt Date: 20060328
  Transmission Date: 20061013
  Serious: Yes (Death, Hospitalization)
  Sender: FDA-Public Use
  Company Number: CA-MERCK-0603CAN00175

PATIENT
  Age: 45 Year
  Sex: Female

DRUGS (8)
  1. CANCIDAS [Suspect]
     Indication: SYSTEMIC CANDIDA
     Route: 042
     Dates: start: 20040401
  2. CANCIDAS [Suspect]
     Route: 042
     Dates: start: 20040401
  3. CANCIDAS [Suspect]
     Route: 042
     Dates: start: 20050101
  4. CANCIDAS [Suspect]
     Route: 042
     Dates: start: 20050101
  5. CANCIDAS [Suspect]
     Route: 042
     Dates: start: 20050201
  6. CANCIDAS [Suspect]
     Route: 042
     Dates: start: 20050201
  7. ANTIMICROBIAL (UNSPECIFIED) [Concomitant]
     Indication: SYSTEMIC CANDIDA
     Route: 065
     Dates: start: 20050101
  8. ANTIMICROBIAL (UNSPECIFIED) [Concomitant]
     Indication: SEPTIC SHOCK
     Route: 065
     Dates: start: 20050101

REACTIONS (6)
  - ABDOMINAL ABSCESS [None]
  - CATHETER RELATED INFECTION [None]
  - DEATH [None]
  - LOWER GASTROINTESTINAL HAEMORRHAGE [None]
  - SEPTIC SHOCK [None]
  - SYSTEMIC CANDIDA [None]
